FAERS Safety Report 4313544-8 (Version None)
Quarter: 2004Q1

REPORT INFORMATION
  Report Type: 
  Country: None (occurrence: None)
  Receive Date: 20040308
  Receipt Date: 20040227
  Transmission Date: 20041129
  Serious: Yes (Other)
  Sender: FDA-Public Use
  Company Number: GB-GLAXOSMITHKLINE-B0324928A

PATIENT

DRUGS (1)
  1. ABACAVIR SULPHATE [Suspect]

REACTIONS (1)
  - HEPATITIS [None]
